FAERS Safety Report 9687073 (Version 2)
Quarter: 2013Q4

REPORT INFORMATION
  Report Type: Spontaneous
  Country: US (occurrence: US)
  Receive Date: 20131113
  Receipt Date: 20131219
  Transmission Date: 20140711
  Serious: Yes (Hospitalization)
  Sender: FDA-Public Use
  Company Number: US-B.I. PHARMACEUTICALS,INC./RIDGEFIELD-2013-BI-36357BP

PATIENT
  Age: 81 Year
  Sex: Male
  Weight: 81.19 kg

DRUGS (7)
  1. PRADAXA [Suspect]
     Indication: ATRIAL FIBRILLATION
     Dosage: 300 MG
     Dates: start: 20110210, end: 20111127
  2. LASIX [Concomitant]
     Dosage: 20 MG
  3. DIOVAN HCT [Concomitant]
  4. NORVASC [Concomitant]
     Dosage: 10 MG
  5. VASOTEC [Concomitant]
     Dosage: 20 MG
  6. TEKTURNA [Concomitant]
     Dosage: 300 MG
  7. HYTRIN [Concomitant]
     Dosage: 2 MG

REACTIONS (4)
  - Gastrointestinal haemorrhage [Unknown]
  - Anaemia [Unknown]
  - Renal failure acute [Unknown]
  - Epistaxis [Recovered/Resolved]
